FAERS Safety Report 5998239-7 (Version None)
Quarter: 2008Q4

REPORT INFORMATION
  Report Type: 
  Country: None (occurrence: None)
  Receive Date: 20081213
  Receipt Date: 20080701
  Transmission Date: 20090506
  Serious: No
  Sender: FDA-Public Use
  Company Number: US-AMGEN-KDL281540

PATIENT
  Sex: Female

DRUGS (3)
  1. ENBREL [Suspect]
     Indication: PSORIASIS
     Route: 058
     Dates: start: 20050101, end: 20080601
  2. LIPITOR [Concomitant]
  3. COZAAR [Concomitant]

REACTIONS (2)
  - PSORIASIS [None]
  - TUBERCULIN TEST POSITIVE [None]
